FAERS Safety Report 5463645-6 (Version None)
Quarter: 2007Q3

REPORT INFORMATION
  Report Type: 
  Country: None (occurrence: None)
  Receive Date: 20070920
  Receipt Date: 20070911
  Transmission Date: 20080115
  Serious: Yes (Other)
  Sender: FDA-Public Use
  Company Number: AU-MERCK-0709AUS00095

PATIENT
  Age: 78 Year
  Sex: Male

DRUGS (3)
  1. ZOCOR [Suspect]
     Indication: BLOOD CHOLESTEROL INCREASED
     Route: 048
     Dates: start: 20070601, end: 20070601
  2. ZOCOR [Suspect]
     Route: 048
     Dates: start: 20030101
  3. ZOCOR [Suspect]
     Route: 048
     Dates: start: 20070801, end: 20070801

REACTIONS (2)
  - ADVERSE EVENT [None]
  - MYALGIA [None]
